FAERS Safety Report 7868282-1 (Version None)
Quarter: 2011Q4

REPORT INFORMATION
  Report Type: 
  Country: None (occurrence: None)
  Receive Date: 20111028
  Receipt Date: 20101228
  Transmission Date: 20120403
  Serious: Yes (Other)
  Sender: FDA-Public Use
  Company Number: US-AMGEN-USASP2010006770

PATIENT
  Sex: Male

DRUGS (8)
  1. FORADIL                            /00958001/ [Concomitant]
     Dosage: UNK
     Dates: start: 20091106
  2. ALBUTEROL [Concomitant]
     Dosage: UNK
     Dates: start: 20071204
  3. MERCAPTOPURINE [Concomitant]
     Dosage: UNK
     Dates: start: 20080318
  4. VENTOLIN HFA [Concomitant]
     Dosage: UNK
     Dates: start: 20091008
  5. QVAR 40 [Concomitant]
     Dosage: UNK
     Dates: start: 20090323
  6. ENBREL [Suspect]
     Indication: PSORIATIC ARTHROPATHY
     Dosage: UNK
     Dates: end: 20100629
  7. PREDNISONE [Concomitant]
     Dosage: 1 MG, UNK
     Dates: start: 20060124
  8. SPIRIVA [Concomitant]
     Dosage: UNK
     Dates: start: 20060907

REACTIONS (1)
  - AUTOIMMUNE HEPATITIS [None]
